FAERS Safety Report 18559757 (Version 2)
Quarter: 2024Q2

REPORT INFORMATION
  Report Type: Spontaneous
  Country: DK (occurrence: DK)
  Receive Date: 20201130
  Receipt Date: 20240603
  Transmission Date: 20240716
  Serious: Yes (Death, Congenital Anomaly)
  Sender: FDA-Public Use
  Company Number: None

PATIENT

DRUGS (2)
  1. ARIPIPRAZOLE [Suspect]
     Active Substance: ARIPIPRAZOLE
     Indication: Bipolar disorder
     Dosage: STRENGTH: 5 MG
     Route: 064
     Dates: start: 20190705
  2. LITHIUM [Suspect]
     Active Substance: LITHIUM
     Indication: Mood swings
     Dosage: STRENGTH: 6 MMOL LI+
     Route: 064
     Dates: start: 20190613

REACTIONS (3)
  - Congenital aplasia [Fatal]
  - Foetal exposure during pregnancy [Fatal]
  - Congenital diaphragmatic hernia [Fatal]
